FAERS Safety Report 12351393 (Version 2)
Quarter: 2016Q2

REPORT INFORMATION
  Report Type: Spontaneous
  Country: RU (occurrence: RU)
  Receive Date: 20160510
  Receipt Date: 20160622
  Transmission Date: 20160815
  Serious: Yes (Life-Threatening, Other)
  Sender: FDA-Public Use
  Company Number: RU-PFIZER INC-2016245160

PATIENT
  Age: 75 Year
  Sex: Female

DRUGS (1)
  1. CELEBREX [Suspect]
     Active Substance: CELECOXIB
     Indication: PAIN
     Dosage: 200 MG, 2X/DAY
     Route: 048
     Dates: start: 20160411, end: 20160413

REACTIONS (3)
  - Arrhythmia [Recovered/Resolved]
  - Disseminated intravascular coagulation [Recovering/Resolving]
  - Embolism [Recovered/Resolved]

NARRATIVE: CASE EVENT DATE: 201604
